FAERS Safety Report 23021844 (Version 1)
Quarter: 2023Q4

REPORT INFORMATION
  Report Type: Spontaneous
  Country: US (occurrence: US)
  Receive Date: 20231003
  Receipt Date: 20231003
  Transmission Date: 20240109
  Serious: No
  Sender: FDA-Public Use
  Company Number: US-SA-SAC20230927001008

PATIENT
  Age: 41 Year
  Sex: Female
  Weight: 85.7 kg

DRUGS (2)
  1. DUPIXENT [Suspect]
     Active Substance: DUPILUMAB
     Indication: Dermatitis atopic
     Dosage: 1X
     Route: 058
     Dates: start: 20220826, end: 20230826
  2. DUPIXENT [Suspect]
     Active Substance: DUPILUMAB
     Dosage: 300MG QOW
     Route: 058
     Dates: start: 2022

REACTIONS (8)
  - Dry skin [Unknown]
  - Scratch [Recovered/Resolved]
  - Injection site hypoaesthesia [Recovered/Resolved]
  - Injection site mass [Recovered/Resolved]
  - Pruritus [Unknown]
  - Erythema [Recovered/Resolved]
  - Skin exfoliation [Recovered/Resolved]
  - Eczema [Recovered/Resolved]

NARRATIVE: CASE EVENT DATE: 20230826
